FAERS Safety Report 21439637 (Version 1)
Quarter: 2022Q4

REPORT INFORMATION
  Report Type: Report from Study
  Country: GB (occurrence: None)
  Receive Date: 20221011
  Receipt Date: 20221011
  Transmission Date: 20230113
  Serious: Yes (Hospitalization)
  Sender: FDA-Public Use
  Company Number: GB-Merck Healthcare KGaA-9356369

PATIENT
  Sex: Male

DRUGS (2)
  1. MAVENCLAD [Suspect]
     Active Substance: CLADRIBINE
     Indication: Multiple sclerosis
     Dosage: YEAR ONE WEEK ONE THERAPY: 2 TABLETS ON DAY 1 AND 1 TABLET ON DAYS 2 TO 5
     Route: 048
     Dates: start: 20211122
  2. MAVENCLAD [Suspect]
     Active Substance: CLADRIBINE
     Dosage: YEAR ONE WEEK TWO THERAPY: 2 TABLETS ON DAY 1 AND 1 TABLET ON DAYS 2 TO 5
     Route: 048

REACTIONS (3)
  - Kidney small [Unknown]
  - Kidney fibrosis [Unknown]
  - Renal impairment [Not Recovered/Not Resolved]
